FAERS Safety Report 6322464-9 (Version None)
Quarter: 2009Q3

REPORT INFORMATION
  Report Type: 
  Country: None (occurrence: None)
  Receive Date: 20090824
  Receipt Date: 20090209
  Transmission Date: 20100115
  Serious: No
  Sender: FDA-Public Use
  Company Number: US-ABBOTT-09P-163-0502580-00

PATIENT
  Sex: Female

DRUGS (20)
  1. NIASPAN [Suspect]
     Indication: BLOOD CHOLESTEROL INCREASED
     Route: 048
     Dates: start: 20081226
  2. NIASPAN [Suspect]
     Indication: BLOOD TRIGLYCERIDES INCREASED
  3. NIASPAN [Suspect]
  4. DIOVAN [Concomitant]
     Indication: HYPERTENSION
  5. LOVASA [Concomitant]
     Indication: BLOOD TRIGLYCERIDES INCREASED
     Dosage: 2 CAPSULES IN MORNING AND 2 CAPSULES AT NIGHT
  6. GASTRIC COMPLEX [Concomitant]
     Indication: ENZYME SUPPLEMENTATION
  7. GLUTAMINE [Concomitant]
     Indication: GASTROINTESTINAL DISORDER
  8. FOLIPLEX [Concomitant]
     Indication: DRUG USE FOR UNKNOWN INDICATION
     Dosage: 1 - 800 MCG/2.5 MG CAPSULE DAILY
  9. CALCIUM W/VITAMIN D [Concomitant]
     Indication: DRUG USE FOR UNKNOWN INDICATION
  10. MAGNESIUM [Concomitant]
     Indication: DRUG USE FOR UNKNOWN INDICATION
  11. VITAMIN D [Concomitant]
     Indication: DRUG USE FOR UNKNOWN INDICATION
  12. BCQ [Concomitant]
     Indication: ANTIINFLAMMATORY THERAPY
  13. BECTIM [Concomitant]
     Indication: BACTERIA STOOL IDENTIFIED
  14. BERBERINE COMPLEX [Concomitant]
     Indication: INFECTION PROPHYLAXIS
  15. BERBERINE COMPLEX [Concomitant]
     Indication: ANTIFUNGAL PROPHYLAXIS
  16. ADAPT [Concomitant]
     Indication: ADRENAL INSUFFICIENCY
  17. GUGUL [Concomitant]
     Indication: BLOOD CHOLESTEROL
  18. GUGUL [Concomitant]
     Indication: THYROID DISORDER
  19. ASPIRIN [Concomitant]
     Indication: DRUG USE FOR UNKNOWN INDICATION
  20. ASPIRIN [Concomitant]

REACTIONS (5)
  - BLOOD PRESSURE INCREASED [None]
  - EPISTAXIS [None]
  - ERYTHEMA [None]
  - PARAESTHESIA [None]
  - PRURITUS GENERALISED [None]
